FAERS Safety Report 10049040 (Version 1)
Quarter: 2014Q1

REPORT INFORMATION
  Report Type: Spontaneous
  Country: RU (occurrence: RU)
  Receive Date: 20140331
  Receipt Date: 20140331
  Transmission Date: 20141002
  Serious: Yes (Life-Threatening)
  Sender: FDA-Public Use
  Company Number: RU-ASTRAZENECA-2014SE22218

PATIENT
  Age: 55 Year
  Sex: Female
  Weight: 60 kg

DRUGS (3)
  1. BRILINTA [Suspect]
     Indication: ACUTE CORONARY SYNDROME
     Route: 048
     Dates: start: 20131030, end: 20131104
  2. ANTI-PLATELET THERAPY [Concomitant]
  3. HEPARIN (HEPARIN SODIUM) [Concomitant]

REACTIONS (1)
  - Thrombosis in device [Recovered/Resolved]
